FAERS Safety Report 9128476 (Version 1)
Quarter: 2013Q1

REPORT INFORMATION
  Report Type: Report from Study
  Country: US (occurrence: US)
  Receive Date: 20130228
  Receipt Date: 20130228
  Transmission Date: 20140127
  Serious: Yes (Hospitalization)
  Sender: FDA-Public Use
  Company Number: US-ROCHE-1196370

PATIENT
  Sex: Female
  Weight: 57.66 kg

DRUGS (1)
  1. AVASTIN [Suspect]
     Indication: GLIOBLASTOMA
     Route: 042
     Dates: start: 20130101, end: 20130129

REACTIONS (2)
  - Abasia [Not Recovered/Not Resolved]
  - Neoplasm [Not Recovered/Not Resolved]
